FAERS Safety Report 4853297-8 (Version None)
Quarter: 2005Q4

REPORT INFORMATION
  Report Type: 
  Country: None (occurrence: None)
  Receive Date: 20051214
  Receipt Date: 20051212
  Transmission Date: 20060501
  Serious: Yes (Hospitalization)
  Sender: FDA-Public Use
  Company Number: US-GLAXOSMITHKLINE-A0585533A

PATIENT
  Age: 54 Year
  Sex: Female

DRUGS (3)
  1. PAXIL [Suspect]
     Indication: DEPRESSION
     Dosage: 40MG PER DAY
     Route: 048
  2. PAXIL CR [Suspect]
     Indication: DEPRESSION
     Dosage: 37.5MG PER DAY
     Route: 048
     Dates: start: 20051101
  3. NO CONCURRENT MEDICATION [Concomitant]

REACTIONS (8)
  - ABDOMINAL DISTENSION [None]
  - CRYING [None]
  - DRUG INEFFECTIVE [None]
  - FEELINGS OF WORTHLESSNESS [None]
  - MEMORY IMPAIRMENT [None]
  - OEDEMA PERIPHERAL [None]
  - SENSORY DISTURBANCE [None]
  - SUICIDAL IDEATION [None]
